FAERS Safety Report 5071543-5 (Version None)
Quarter: 2006Q3

REPORT INFORMATION
  Report Type: 
  Country: None (occurrence: None)
  Receive Date: 20060803
  Receipt Date: 20060803
  Transmission Date: 20061208
  Serious: Yes (Hospitalization)
  Sender: FDA-Public Use
  Company Number: None

PATIENT
  Age: 65 Year
  Sex: Male
  Weight: 95.7 kg

DRUGS (1)
  1. BACTRIM DS [Suspect]
     Indication: INFECTION
     Dosage: 1 TABLET PO DAILY
     Route: 048
     Dates: start: 20060525, end: 20060528

REACTIONS (3)
  - NAUSEA [None]
  - RASH [None]
  - VOMITING [None]
